FAERS Safety Report 16573495 (Version 1)
Quarter: 2019Q3

REPORT INFORMATION
  Report Type: Spontaneous
  Country: US (occurrence: US)
  Receive Date: 20190601
  Receipt Date: 20190601
  Transmission Date: 20191004
  Serious: Yes (Hospitalization)
  Sender: FDA-Public Use
  Company Number: None

PATIENT
  Age: 74 Year
  Sex: Female
  Weight: 95.6 kg

DRUGS (2)
  1. CYCLOPHOSPHAMIDE. [Suspect]
     Active Substance: CYCLOPHOSPHAMIDE
     Dates: end: 20190529
  2. DOXORUBICIN HYDROCHLORIDE. [Suspect]
     Active Substance: DOXORUBICIN HYDROCHLORIDE
     Dates: end: 20190529

REACTIONS (8)
  - Breast tenderness [None]
  - Musculoskeletal pain [None]
  - Breast pain [None]
  - Anaemia [None]
  - Tenderness [None]
  - Muscle spasms [None]
  - Breast abscess [None]
  - Mucosal inflammation [None]

NARRATIVE: CASE EVENT DATE: 20190526
